FAERS Safety Report 23690599 (Version 1)
Quarter: 2024Q2

REPORT INFORMATION
  Report Type: Spontaneous
  Country: FR (occurrence: FR)
  Receive Date: 20240401
  Receipt Date: 20240401
  Transmission Date: 20240716
  Serious: Yes (Death, Hospitalization, Other)
  Sender: FDA-Public Use
  Company Number: FR-EMA-DD-20240315-7482711-124503

PATIENT
  Age: 64 Year
  Sex: Female
  Weight: 54 kg

DRUGS (26)
  1. POMALIDOMIDE [Suspect]
     Active Substance: POMALIDOMIDE
     Indication: Plasma cell myeloma
     Route: 048
     Dates: start: 201803, end: 201807
  2. POMALIDOMIDE [Suspect]
     Active Substance: POMALIDOMIDE
     Route: 048
     Dates: start: 20210318, end: 20210415
  3. THALIDOMIDE [Suspect]
     Active Substance: THALIDOMIDE
     Indication: Plasma cell myeloma
     Dates: start: 201507, end: 201510
  4. THALIDOMIDE [Suspect]
     Active Substance: THALIDOMIDE
     Dates: start: 20151228
  5. THALIDOMIDE [Suspect]
     Active Substance: THALIDOMIDE
     Dates: start: 20160419
  6. THALIDOMIDE [Suspect]
     Active Substance: THALIDOMIDE
     Dates: start: 20160517
  7. LENALIDOMIDE [Suspect]
     Active Substance: LENALIDOMIDE
     Indication: Plasma cell myeloma
     Route: 048
     Dates: start: 201704, end: 201708
  8. DEXAMETHASONE [Suspect]
     Active Substance: DEXAMETHASONE
     Indication: Plasma cell myeloma
     Dates: start: 201507, end: 201510
  9. DEXAMETHASONE [Suspect]
     Active Substance: DEXAMETHASONE
     Dates: start: 20151228
  10. DEXAMETHASONE [Suspect]
     Active Substance: DEXAMETHASONE
     Dates: start: 20160419
  11. DEXAMETHASONE [Suspect]
     Active Substance: DEXAMETHASONE
     Dates: start: 20160517
  12. DEXAMETHASONE [Suspect]
     Active Substance: DEXAMETHASONE
     Dates: start: 201704, end: 201708
  13. DEXAMETHASONE [Suspect]
     Active Substance: DEXAMETHASONE
     Dates: start: 20171215, end: 20180216
  14. DEXAMETHASONE [Suspect]
     Active Substance: DEXAMETHASONE
     Dates: start: 201803, end: 201807
  15. DEXAMETHASONE [Suspect]
     Active Substance: DEXAMETHASONE
     Dates: start: 20210318, end: 20210415
  16. VELCADE [Suspect]
     Active Substance: BORTEZOMIB
     Indication: Plasma cell myeloma
     Dates: start: 201507, end: 201510
  17. VELCADE [Suspect]
     Active Substance: BORTEZOMIB
     Dates: start: 20151228
  18. VELCADE [Suspect]
     Active Substance: BORTEZOMIB
     Dates: start: 20160419
  19. VELCADE [Suspect]
     Active Substance: BORTEZOMIB
     Dates: start: 20160517
  20. VELCADE [Suspect]
     Active Substance: BORTEZOMIB
     Dates: start: 20171215, end: 20180216
  21. CARFILZOMIB [Suspect]
     Active Substance: CARFILZOMIB
     Indication: Plasma cell myeloma
     Route: 048
  22. DARATUMUMAB [Suspect]
     Active Substance: DARATUMUMAB
     Indication: Plasma cell myeloma
     Route: 048
     Dates: start: 20171215, end: 20180216
  23. DARATUMUMAB [Suspect]
     Active Substance: DARATUMUMAB
     Route: 048
     Dates: start: 201803, end: 201807
  24. ISATUXIMAB [Suspect]
     Active Substance: ISATUXIMAB
     Indication: Plasma cell myeloma
     Route: 048
     Dates: start: 20210318, end: 20210415
  25. GAMMANORM [Concomitant]
     Active Substance: HUMAN IMMUNOGLOBULIN G
     Indication: Product used for unknown indication
     Route: 058
     Dates: start: 201810, end: 201907
  26. AREDIA [Concomitant]
     Active Substance: PAMIDRONATE DISODIUM
     Indication: Product used for unknown indication
     Dates: start: 20210318, end: 20210415

REACTIONS (1)
  - Plasma cell myeloma [Fatal]

NARRATIVE: CASE EVENT DATE: 20210701
